FAERS Safety Report 20541064 (Version 1)
Quarter: 2022Q1

REPORT INFORMATION
  Report Type: Spontaneous
  Country: JP (occurrence: JP)
  Receive Date: 20220302
  Receipt Date: 20220302
  Transmission Date: 20220423
  Serious: Yes (Other)
  Sender: FDA-Public Use
  Company Number: JP-JNJFOC-20211007022

PATIENT

DRUGS (4)
  1. STELARA [Suspect]
     Active Substance: USTEKINUMAB
     Indication: Crohn^s disease
     Dosage: USTEKINUMAB (GENETICAL RECOMBINATION):130MG
     Route: 064
     Dates: start: 20210422
  2. STELARA [Suspect]
     Active Substance: USTEKINUMAB
     Dosage: USTEKINUMAB (GENETICAL RECOMBINATION):45MG
     Route: 064
     Dates: start: 20210701, end: 202108
  3. MESALAMINE [Concomitant]
     Active Substance: MESALAMINE
     Route: 064
     Dates: start: 20210422
  4. MESALAMINE [Concomitant]
     Active Substance: MESALAMINE
     Route: 064
     Dates: start: 20210701, end: 202108

REACTIONS (2)
  - Premature baby [Unknown]
  - Foetal exposure during pregnancy [Unknown]

NARRATIVE: CASE EVENT DATE: 20210422
